FAERS Safety Report 6306212-4 (Version None)
Quarter: 2009Q3

REPORT INFORMATION
  Report Type: 
  Country: None (occurrence: None)
  Receive Date: 20090812
  Receipt Date: 20090615
  Transmission Date: 20100115
  Serious: No
  Sender: FDA-Public Use
  Company Number: US-BAYER-200924650NA

PATIENT
  Age: 55 Year
  Sex: Male
  Weight: 76 kg

DRUGS (3)
  1. MAGNEVIST [Suspect]
     Indication: NUCLEAR MAGNETIC RESONANCE IMAGING BRAIN
     Dosage: TOTAL DAILY DOSE: 15 ML
     Route: 042
     Dates: start: 20090610, end: 20090610
  2. ALAX [Concomitant]
  3. SINGULAIR [Concomitant]

REACTIONS (1)
  - URTICARIA [None]
